FAERS Safety Report 16456198 (Version 1)
Quarter: 2019Q2

REPORT INFORMATION
  Report Type: Spontaneous
  Country: IT (occurrence: IT)
  Receive Date: 20190620
  Receipt Date: 20190620
  Transmission Date: 20190711
  Serious: Yes (Other)
  Sender: FDA-Public Use
  Company Number: IT-ACCORD-133871

PATIENT
  Age: 77 Year
  Sex: Male
  Weight: 82 kg

DRUGS (6)
  1. XATRAL [Concomitant]
     Active Substance: ALFUZOSIN
  2. PANTORC [Concomitant]
     Active Substance: PANTOPRAZOLE SODIUM
  3. CISPLATIN. [Suspect]
     Active Substance: CISPLATIN
     Indication: SQUAMOUS CELL CARCINOMA OF LUNG
     Dosage: DATE AND TIME OF LAST ADMINISTRATION: 24-APR-2019
     Route: 042
     Dates: start: 20190306
  4. LERCAPREL [Concomitant]
     Active Substance: ENALAPRIL MALEATE\LERCANIDIPINE HYDROCHLORIDE
  5. ZYLORIC [Concomitant]
     Active Substance: ALLOPURINOL
  6. URSOBIL [Concomitant]
     Active Substance: URSODIOL

REACTIONS (1)
  - Neurosensory hypoacusis [Recovering/Resolving]

NARRATIVE: CASE EVENT DATE: 20190327
